FAERS Safety Report 7209289-7 (Version None)
Quarter: 2011Q1

REPORT INFORMATION
  Report Type: 
  Country: None (occurrence: None)
  Receive Date: 20110104
  Receipt Date: 20101230
  Transmission Date: 20110831
  Serious: Yes (Hospitalization)
  Sender: FDA-Public Use
  Company Number: B0691597A

PATIENT
  Sex: Male

DRUGS (13)
  1. CARDENSIEL [Concomitant]
     Dosage: 7.5MG PER DAY
     Route: 065
  2. TEMESTA [Concomitant]
     Dosage: 1MG AT NIGHT
     Route: 065
  3. CORDARONE [Concomitant]
     Route: 065
     Dates: start: 20100103
  4. GLUCOPHAGE [Concomitant]
     Dosage: 850MG TWICE PER DAY
     Route: 065
  5. KARDEGIC [Concomitant]
     Dosage: 75MG PER DAY
     Route: 065
  6. TAHOR [Concomitant]
     Dosage: 40MG AT NIGHT
     Route: 065
  7. IRBESARTAN [Concomitant]
     Dosage: 75MG IN THE MORNING
     Route: 065
  8. NOVONORM [Concomitant]
     Dosage: 4MG THREE TIMES PER DAY
     Route: 065
  9. LASIX [Concomitant]
     Dosage: 40MG TWICE PER DAY
     Route: 065
  10. BRICANYL [Concomitant]
     Indication: DYSPNOEA
     Dosage: 2PUFF AS REQUIRED
     Route: 065
  11. AUGMENTIN [Suspect]
     Indication: BRONCHITIS
     Route: 048
     Dates: start: 20091224, end: 20091231
  12. PREVISCAN [Suspect]
     Indication: ARRHYTHMIA
     Dosage: 20MG PER DAY
     Route: 048
     Dates: end: 20100104
  13. SYMBICORT [Concomitant]
     Indication: DYSPNOEA
     Dosage: 2PUFF TWICE PER DAY
     Route: 055

REACTIONS (5)
  - MUSCLE HAEMORRHAGE [None]
  - DRUG LEVEL INCREASED [None]
  - GROIN PAIN [None]
  - DRUG INTERACTION [None]
  - INTERNATIONAL NORMALISED RATIO INCREASED [None]
